FAERS Safety Report 6517754-0 (Version None)
Quarter: 2009Q4

REPORT INFORMATION
  Report Type: 
  Country: None (occurrence: None)
  Receive Date: 20091224
  Receipt Date: 20091217
  Transmission Date: 20100525
  Serious: Yes (Life-Threatening)
  Sender: FDA-Public Use
  Company Number: JP-BRISTOL-MYERS SQUIBB COMPANY-14862619

PATIENT
  Age: 51 Year
  Sex: Female
  Weight: 66 kg

DRUGS (5)
  1. TAXOL [Suspect]
     Indication: BREAST CANCER
     Dosage: 12COURSES
     Route: 041
     Dates: start: 20050914, end: 20051207
  2. ENDOXAN [Suspect]
     Indication: BREAST CANCER
     Dosage: 4 COURSES
     Route: 041
     Dates: start: 20050615, end: 20050814
  3. EPIRUBICIN [Suspect]
     Indication: BREAST CANCER
     Dosage: 12 COURSES
     Route: 041
     Dates: start: 20050615, end: 20050814
  4. TAMOXIFEN CITRATE [Suspect]
     Indication: BREAST CANCER
     Dosage: DEC05-OCT08; APR09-ONG
     Route: 048
     Dates: start: 20051201
  5. RADIOTHERAPY [Suspect]
     Indication: BREAST CANCER
     Dosage: 1DF: 50GY

REACTIONS (2)
  - ACUTE PROMYELOCYTIC LEUKAEMIA [None]
  - DISSEMINATED INTRAVASCULAR COAGULATION [None]
